FAERS Safety Report 23284654 (Version 2)
Quarter: 2023Q4

REPORT INFORMATION
  Report Type: Spontaneous
  Country: DK (occurrence: DK)
  Receive Date: 20231211
  Receipt Date: 20231227
  Transmission Date: 20240109
  Serious: Yes (Other)
  Sender: FDA-Public Use
  Company Number: DK-BAYER-2023A171733

PATIENT
  Age: 66 Year

DRUGS (3)
  1. XOFIGO [Suspect]
     Active Substance: RADIUM RA-223 DICHLORIDE
     Dosage: 1*6ML
     Dates: start: 20230905, end: 20230905
  2. XOFIGO [Suspect]
     Active Substance: RADIUM RA-223 DICHLORIDE
     Dosage: 1*6ML
     Dates: start: 20231003, end: 20231003
  3. XOFIGO [Suspect]
     Active Substance: RADIUM RA-223 DICHLORIDE
     Dosage: 1*6ML
     Dates: start: 20231031, end: 20231031

REACTIONS (2)
  - Neck mass [None]
  - Metastasis [None]
